FAERS Safety Report 6151448-9 (Version None)
Quarter: 2009Q2

REPORT INFORMATION
  Report Type: 
  Country: None (occurrence: None)
  Receive Date: 20090410
  Receipt Date: 20090403
  Transmission Date: 20091009
  Serious: Yes (Hospitalization)
  Sender: FDA-Public Use
  Company Number: US-BIOGENIDEC-2009BI009377

PATIENT
  Age: 39 Year
  Sex: Female
  Weight: 53 kg

DRUGS (9)
  1. AVONEX [Suspect]
     Indication: MULTIPLE SCLEROSIS
     Route: 030
     Dates: start: 20030101, end: 20030101
  2. AVONEX [Suspect]
     Route: 030
     Dates: start: 20090320
  3. TOPAMAX [Concomitant]
     Indication: PAIN IN EXTREMITY
  4. TOPAMAX [Concomitant]
     Indication: COORDINATION ABNORMAL
  5. HYDROMORPHONE HCL [Concomitant]
     Indication: PAIN IN EXTREMITY
  6. HYDROMORPHONE HCL [Concomitant]
     Indication: COORDINATION ABNORMAL
  7. CLONAZEPAM [Concomitant]
     Indication: ANXIETY
  8. CITALOPRAM HYDROBROMIDE [Concomitant]
     Indication: DEPRESSION
  9. MEDICATIONS NOS [Concomitant]
     Indication: DRUG USE FOR UNKNOWN INDICATION

REACTIONS (9)
  - BACK PAIN [None]
  - CEREBROVASCULAR ACCIDENT [None]
  - DRUG INTERACTION [None]
  - FALL [None]
  - HEADACHE [None]
  - MEMORY IMPAIRMENT [None]
  - NAUSEA [None]
  - TREMOR [None]
  - VOMITING [None]
